FAERS Safety Report 19945785 (Version 2)
Quarter: 2021Q4

REPORT INFORMATION
  Report Type: Spontaneous
  Country: CN (occurrence: CN)
  Receive Date: 20211012
  Receipt Date: 20211019
  Transmission Date: 20220303
  Serious: Yes (Other)
  Sender: FDA-Public Use
  Company Number: CN-PFIZER INC-202101288865

PATIENT
  Age: 15 Month
  Sex: Female
  Weight: 12 kg

DRUGS (4)
  1. AZITHROMYCIN ANHYDROUS [Suspect]
     Active Substance: AZITHROMYCIN ANHYDROUS
     Indication: Anti-infective therapy
     Dosage: 100 MG, 1X/DAY
     Route: 048
     Dates: start: 20210901, end: 20210902
  2. AMBROXOL [Concomitant]
     Active Substance: AMBROXOL
     Indication: Therapeutic procedure
     Dosage: 5 ML, 2X/DAY
     Route: 048
     Dates: start: 20210901, end: 20210906
  3. CEFTRIAXONE SODIUM [Concomitant]
     Active Substance: CEFTRIAXONE SODIUM
     Indication: Anti-infective therapy
     Dosage: 0.4 G, 3X/DAY
     Route: 041
     Dates: start: 20210831, end: 20210906
  4. RACECADOTRIL [Concomitant]
     Active Substance: RACECADOTRIL
     Indication: Diarrhoea
     Dosage: 100 MG, 3X/DAY
     Route: 048
     Dates: start: 20210831, end: 20210906

REACTIONS (1)
  - Infantile vomiting [Recovered/Resolved]

NARRATIVE: CASE EVENT DATE: 20210902
